FAERS Safety Report 7211512-X (Version None)
Quarter: 2011Q1

REPORT INFORMATION
  Report Type: 
  Country: None (occurrence: None)
  Receive Date: 20110105
  Receipt Date: 20101220
  Transmission Date: 20110831
  Serious: Yes (Hospitalization)
  Sender: FDA-Public Use
  Company Number: JP-AMGEN-JPNCT2011000263

PATIENT

DRUGS (7)
  1. HIRUDOID SOFT [Concomitant]
     Route: 062
  2. BLOPRESS [Concomitant]
     Route: 048
  3. LOCOID CREAM [Concomitant]
     Route: 062
  4. MYSER OINTMENT [Concomitant]
     Route: 062
  5. PANITUMUMAB [Suspect]
     Indication: COLORECTAL CANCER
     Dosage: 6 MG/KG, Q2WK
     Route: 041
     Dates: start: 20100726, end: 20100726
  6. MUCOSTA [Concomitant]
     Indication: GASTRITIS
     Route: 048
  7. PANITUMUMAB [Suspect]
     Dosage: 6 MG/KG, Q2WK
     Route: 041
     Dates: start: 20100827, end: 20100927

REACTIONS (3)
  - ACNE [None]
  - CANCER PAIN [None]
  - DECREASED APPETITE [None]
